FAERS Safety Report 21385977 (Version 1)
Quarter: 2022Q3

REPORT INFORMATION
  Report Type: Spontaneous
  Country: FR (occurrence: None)
  Receive Date: 20220928
  Receipt Date: 20220928
  Transmission Date: 20221026
  Serious: Yes (Other)
  Sender: FDA-Public Use
  Company Number: 2022A326642

PATIENT
  Age: 79 Year
  Sex: Female
  Weight: 49 kg

DRUGS (1)
  1. DAPAGLIFLOZIN [Suspect]
     Active Substance: DAPAGLIFLOZIN
     Indication: Cardiac failure
     Dosage: ONCE/SINGLE ADMINISTRATION
     Route: 048

REACTIONS (5)
  - Weight decreased [Recovering/Resolving]
  - Fatigue [Unknown]
  - Feeling abnormal [Unknown]
  - Muscle atrophy [Unknown]
  - Gammopathy [Unknown]
